FAERS Safety Report 7769683-2 (Version None)
Quarter: 2011Q3

REPORT INFORMATION
  Report Type: 
  Country: None (occurrence: None)
  Receive Date: 20110922
  Receipt Date: 20100802
  Transmission Date: 20111222
  Serious: No
  Sender: FDA-Public Use
  Company Number: US-ASTRAZENECA-2007UW10885

PATIENT
  Age: 536 Month
  Sex: Female
  Weight: 110.7 kg

DRUGS (86)
  1. RISPERIDONE [Concomitant]
     Dates: start: 20050401
  2. CYMBALTA [Concomitant]
     Dosage: 30 MG TO 120 MG
     Dates: start: 20041206
  3. HYDROXYZINE HCL [Concomitant]
     Dates: start: 20041206
  4. GLYCOLAX [Concomitant]
  5. BACLOFEN [Concomitant]
  6. OXCARBAZEPINE [Concomitant]
  7. SEROQUEL [Suspect]
     Dosage: 1200-1600MG
     Route: 048
     Dates: start: 20060126
  8. SEROQUEL [Suspect]
     Dosage: 1200-1600MG
     Route: 048
     Dates: start: 20060126
  9. GEODON [Concomitant]
     Route: 065
  10. HALDOL [Concomitant]
     Dates: start: 20040901
  11. PREMARIN [Concomitant]
     Dates: start: 20030408
  12. METOCLOPRAMIDE H [Concomitant]
  13. PROMETHAZINE [Concomitant]
  14. PAXIL CR [Concomitant]
     Dosage: 30 MG DAILY AND 37.5 MG
     Dates: start: 20030408
  15. WELLBUTRIN XL [Concomitant]
     Dosage: 150-300 MG
     Route: 065
  16. NEURONTIN [Concomitant]
     Dosage: 1-3 TIMES A DAY
     Dates: start: 20031101
  17. TOPAMAX [Concomitant]
     Dates: start: 20010701, end: 20040601
  18. CARBATROL [Concomitant]
  19. ALPRAZOLAM [Concomitant]
  20. SEROQUEL [Suspect]
     Indication: DEPRESSION
     Dosage: 25-800 MG
     Route: 048
     Dates: start: 20030301
  21. SEROQUEL [Suspect]
     Indication: AFFECTIVE DISORDER
     Dosage: 25-800 MG
     Route: 048
     Dates: start: 20030301
  22. SEROQUEL [Suspect]
     Dosage: 400-600 MG
     Route: 048
     Dates: start: 20041206
  23. CLOZAPINE [Concomitant]
     Dates: start: 20010501
  24. NEURONTIN [Concomitant]
     Dosage: 300-800 MG
  25. AMITRIPTYLINE HCL [Concomitant]
     Dosage: 25 MG TO 100 MG
  26. TRILEPTAL [Concomitant]
     Dates: start: 20050501
  27. CLONIDINE [Concomitant]
  28. METFORMIN HCL [Concomitant]
     Dates: start: 20080617
  29. ESTRADIOL [Concomitant]
  30. PREVACID [Concomitant]
  31. BENZONATATE [Concomitant]
  32. SEROQUEL [Suspect]
     Dosage: 25 MG-400 MG
     Route: 048
     Dates: start: 20040507
  33. SEROQUEL [Suspect]
     Dosage: 25 MG-400 MG
     Route: 048
     Dates: start: 20040507
  34. CYMBALTA [Concomitant]
     Route: 065
  35. WELLBUTRIN XL [Concomitant]
     Dosage: 300-450 MG
     Dates: start: 20020801
  36. LOPERAMIDE HCL [Concomitant]
  37. DETROL LA [Concomitant]
  38. BEXTRA [Concomitant]
  39. CIPROFLOXACIN [Concomitant]
     Route: 065
  40. STRATTERA [Concomitant]
  41. HYDROCODONE BITARTRATE AND ACETAMINOPHEN [Concomitant]
  42. LIDOCAINE [Concomitant]
  43. SONATA [Concomitant]
     Dosage: 5-10 MG
  44. NABUMETONE [Concomitant]
  45. SEROQUEL [Suspect]
     Indication: BIPOLAR DISORDER
     Dosage: 25-800 MG
     Route: 048
     Dates: start: 20030301
  46. SEROQUEL [Suspect]
     Indication: INSOMNIA
     Dosage: 25-800 MG
     Route: 048
     Dates: start: 20030301
  47. SEROQUEL [Suspect]
     Dosage: 25 MG-400 MG
     Route: 048
     Dates: start: 20040507
  48. SEROQUEL [Suspect]
     Dosage: 400-600 MG
     Route: 048
     Dates: start: 20041206
  49. SEROQUEL [Suspect]
     Dosage: 1200-1600MG
     Route: 048
     Dates: start: 20060126
  50. GEODON [Concomitant]
     Dosage: 40-120 MG
     Dates: start: 20010501
  51. TRAZODONE HCL [Concomitant]
  52. PROTONIX [Concomitant]
  53. DICLOFENAC SODIUM [Concomitant]
  54. LACTULOSE [Concomitant]
  55. ACETAMINOPHEN [Concomitant]
  56. PANNAZ [Concomitant]
  57. NORTRIPTYLINE HCL [Concomitant]
  58. LISINOPRIL AND HYDROCHLOROTHIAZIDE [Concomitant]
  59. FORADIL AIROLIZER [Concomitant]
  60. VYTORIN [Concomitant]
  61. DILTIAZEM [Concomitant]
     Dates: start: 20041206
  62. SEROQUEL [Suspect]
     Dosage: 400-600 MG
     Route: 048
     Dates: start: 20041206
  63. ZYPREXA [Concomitant]
     Dates: start: 20010701, end: 20010801
  64. DEPAKOTE [Concomitant]
     Dosage: 1-3 TIMES A DAY
     Dates: start: 20030401, end: 20031001
  65. CELEXA [Concomitant]
  66. CONCERTA [Concomitant]
  67. CONCERTA [Concomitant]
     Route: 065
     Dates: start: 20041206
  68. FEXOFENADINE [Concomitant]
  69. HYDROCORTISONE A [Concomitant]
  70. CLONAZEPAM [Concomitant]
     Dosage: 0.5-1 MG
  71. NITROFURANTOIN [Concomitant]
  72. NEXIUM [Concomitant]
     Dates: start: 20041206
  73. DIAZEPAM [Concomitant]
     Dosage: 5-30 MG
     Dates: start: 20041206
  74. TIZANIDINE HCL [Concomitant]
  75. SEROQUEL [Suspect]
     Dosage: 25 MG-400 MG
     Route: 048
     Dates: start: 20040507
  76. SEROQUEL [Suspect]
     Dosage: 400-600 MG
     Route: 048
     Dates: start: 20041206
  77. SEROQUEL [Suspect]
     Dosage: 1200-1600MG
     Route: 048
     Dates: start: 20060126
  78. HYDROCHLOROTHIAZIDE [Concomitant]
     Dosage: 12.5-50 MG
     Dates: start: 20030408
  79. LEVAQUIN [Concomitant]
  80. NAPROXEN [Concomitant]
  81. CYCLOPHOSPHAMIDE [Concomitant]
  82. MUCINEX [Concomitant]
  83. PROPOXY/APAP [Concomitant]
     Dosage: 100/650
  84. DICYCLOMINE SOD [Concomitant]
  85. METHYLPREDNISOLONE [Concomitant]
  86. BYETTA [Concomitant]

REACTIONS (4)
  - OBESITY [None]
  - TYPE 2 DIABETES MELLITUS [None]
  - BLOOD TRIGLYCERIDES INCREASED [None]
  - BLOOD CHOLESTEROL INCREASED [None]
